FAERS Safety Report 7662404-3 (Version None)
Quarter: 2011Q3

REPORT INFORMATION
  Report Type: 
  Country: None (occurrence: None)
  Receive Date: 20110805
  Receipt Date: 20101228
  Transmission Date: 20111222
  Serious: No
  Sender: FDA-Public Use
  Company Number: US-ABBOTT-11P-163-0694650-00

PATIENT
  Sex: Male
  Weight: 99.88 kg

DRUGS (8)
  1. COREG [Concomitant]
     Indication: HYPERTENSION
  2. LISINOPRIL [Concomitant]
     Indication: HYPERTENSION
  3. PLAVIX [Concomitant]
     Indication: THROMBOSIS PROPHYLAXIS
  4. VYTORIN [Concomitant]
     Indication: BLOOD TRIGLYCERIDES INCREASED
  5. OMEPRAZOLE [Concomitant]
     Indication: GASTROOESOPHAGEAL REFLUX DISEASE
  6. AVAPRO [Concomitant]
     Indication: HYPERTENSION
  7. METFORMIN HCL [Concomitant]
     Indication: DIABETES MELLITUS
  8. NIASPAN [Suspect]
     Indication: BLOOD TRIGLYCERIDES INCREASED
     Dates: start: 20101101

REACTIONS (3)
  - HOT FLUSH [None]
  - PARAESTHESIA [None]
  - FEELING HOT [None]
